FAERS Safety Report 8366928-5 (Version None)
Quarter: 2012Q2

REPORT INFORMATION
  Report Type: 
  Country: None (occurrence: None)
  Receive Date: 20120517
  Receipt Date: 20120507
  Transmission Date: 20120825
  Serious: Yes (Hospitalization)
  Sender: FDA-Public Use
  Company Number: DE-JNJFOC-20120511860

PATIENT
  Age: 15 Year
  Sex: Female
  Weight: 62.4 kg

DRUGS (7)
  1. ILARIS [Suspect]
     Indication: PRODUCT USED FOR UNKNOWN INDICATION
     Route: 065
     Dates: start: 20100802
  2. METHOTREXATE SODIUM [Suspect]
     Indication: PRODUCT USED FOR UNKNOWN INDICATION
     Route: 065
  3. ETANERCEPT [Concomitant]
     Route: 065
     Dates: start: 20050104, end: 20060509
  4. PREDNISOLONE [Concomitant]
     Route: 065
  5. PANTOPRAZOLE [Concomitant]
     Route: 065
     Dates: start: 20120412
  6. IBUPROFEN [Suspect]
     Indication: PRODUCT USED FOR UNKNOWN INDICATION
     Dosage: 2X1 TABLET AS NEEDED
     Route: 065
     Dates: end: 20120412
  7. OMEPRAZOLE [Concomitant]
     Route: 065
     Dates: start: 20120321, end: 20120412

REACTIONS (1)
  - DRUG RASH WITH EOSINOPHILIA AND SYSTEMIC SYMPTOMS [None]
